FAERS Safety Report 10846396 (Version 3)
Quarter: 2015Q1

REPORT INFORMATION
  Report Type: Report from Study
  Country: US (occurrence: US)
  Receive Date: 20150220
  Receipt Date: 20150302
  Transmission Date: 20150721
  Serious: Yes (Hospitalization)
  Sender: FDA-Public Use
  Company Number: US-ABBVIE-15K-163-1347421-00

PATIENT
  Age: 14 Year
  Sex: Male
  Weight: 46.31 kg

DRUGS (2)
  1. HUMIRA [Suspect]
     Active Substance: ADALIMUMAB
     Route: 058
  2. HUMIRA [Suspect]
     Active Substance: ADALIMUMAB
     Indication: CROHN^S DISEASE
     Route: 058
     Dates: start: 20141110

REACTIONS (7)
  - Malaise [Unknown]
  - Ileostomy [Not Recovered/Not Resolved]
  - Adverse drug reaction [Recovered/Resolved]
  - Mental disorder [Recovering/Resolving]
  - Drug hypersensitivity [Recovered/Resolved]
  - Formication [Recovered/Resolved]
  - Hair disorder [Recovered/Resolved]

NARRATIVE: CASE EVENT DATE: 2015
